FAERS Safety Report 12440042 (Version 1)
Quarter: 2016Q2

REPORT INFORMATION
  Report Type: Spontaneous
  Country: US (occurrence: US)
  Receive Date: 20160606
  Receipt Date: 20160606
  Transmission Date: 20160815
  Serious: No
  Sender: FDA-Public Use
  Company Number: US-AMGEN-USASP2015060329

PATIENT
  Age: 87 Year
  Sex: Female

DRUGS (1)
  1. EPOGEN [Suspect]
     Active Substance: ERYTHROPOIETIN
     Indication: ANAEMIA
     Dosage: 12000 UNITS, ONCE A WEEK
     Route: 065

REACTIONS (2)
  - Incorrect product storage [Unknown]
  - Medication error [Unknown]
